FAERS Safety Report 20746955 (Version 1)
Quarter: 2022Q2

REPORT INFORMATION
  Report Type: Spontaneous
  Country: US (occurrence: US)
  Receive Date: 20220425
  Receipt Date: 20220425
  Transmission Date: 20220721
  Serious: No
  Sender: FDA-Public Use
  Company Number: US-AMNEAL PHARMACEUTICALS-2022-AMRX-00340

PATIENT
  Sex: Female

DRUGS (1)
  1. ESTRADIOL TRANSDERMAL SYSTEM [Suspect]
     Active Substance: ESTRADIOL
     Indication: Artificial menopause
     Dosage: UNK
     Route: 062

REACTIONS (7)
  - Drug ineffective [Recovered/Resolved]
  - Night sweats [Unknown]
  - Insomnia [Unknown]
  - Hot flush [Unknown]
  - Nausea [Unknown]
  - Application site pruritus [Unknown]
  - Product substitution issue [Unknown]
